FAERS Safety Report 7676419-2 (Version None)
Quarter: 2011Q3

REPORT INFORMATION
  Report Type: 
  Country: None (occurrence: None)
  Receive Date: 20110811
  Receipt Date: 20110801
  Transmission Date: 20111222
  Serious: Yes (Hospitalization)
  Sender: FDA-Public Use
  Company Number: US-JNJFOC-20110606532

PATIENT
  Sex: Female
  Weight: 64.2 kg

DRUGS (14)
  1. PROBIOTICS [Concomitant]
  2. MESALAMINE [Concomitant]
  3. REMICADE [Suspect]
     Route: 042
     Dates: start: 20110418
  4. CULTURELLE [Concomitant]
  5. CIPROFLOXACIN [Concomitant]
  6. FLAGYL [Concomitant]
  7. CITRACAL [Concomitant]
  8. MULTIPLE VITAMIN [Concomitant]
  9. ALBUTEROL SULFATE AUTOHALER [Concomitant]
     Route: 055
  10. REMICADE [Suspect]
     Indication: INFLAMMATORY BOWEL DISEASE
     Route: 042
     Dates: start: 20060511
  11. FOLIC ACID [Concomitant]
  12. FISH OIL [Concomitant]
  13. VITAMIN D [Concomitant]
  14. LACTOBACILLUS [Concomitant]

REACTIONS (1)
  - RECTAL ABSCESS [None]
